FAERS Safety Report 5962164-8 (Version None)
Quarter: 2008Q4

REPORT INFORMATION
  Report Type: 
  Country: None (occurrence: None)
  Receive Date: 20081121
  Receipt Date: 20081107
  Transmission Date: 20090506
  Serious: Yes (Other)
  Sender: FDA-Public Use
  Company Number: JP-GENENTECH-267111

PATIENT
  Sex: Male

DRUGS (8)
  1. AVASTIN [Suspect]
     Indication: COLON CANCER METASTATIC
     Dosage: 5 MG/KG, QD
     Route: 041
     Dates: start: 20071106
  2. IRINOTECAN HYDROCHLORIDE [Suspect]
     Indication: COLON CANCER METASTATIC
     Dosage: 200 MG/M2, QD
     Route: 041
     Dates: start: 20080513
  3. FLUOROURACIL [Suspect]
     Indication: COLON CANCER METASTATIC
     Dosage: UNK
     Route: 042
     Dates: start: 20070401
  4. LEUCOVORIN CALCIUM [Suspect]
     Indication: COLON CANCER METASTATIC
     Dosage: UNK
     Route: 041
     Dates: start: 20070401
  5. OXALIPLATIN [Concomitant]
     Indication: COLON CANCER METASTATIC
     Dosage: UNK
     Route: 041
     Dates: start: 20070401, end: 20080415
  6. BASEN [Concomitant]
     Indication: DRUG USE FOR UNKNOWN INDICATION
     Dosage: UNK
     Dates: start: 20070410, end: 20080515
  7. NATEGLINIDE [Concomitant]
     Indication: DRUG USE FOR UNKNOWN INDICATION
     Dosage: UNK
     Dates: start: 20070410, end: 20071123
  8. EUGLUCON [Concomitant]
     Indication: DRUG USE FOR UNKNOWN INDICATION
     Dosage: UNK
     Dates: start: 20071207, end: 20080515

REACTIONS (3)
  - RETINAL HAEMORRHAGE [None]
  - RETINAL TEAR [None]
  - VITREOUS HAEMORRHAGE [None]
